FAERS Safety Report 5345376-6 (Version None)
Quarter: 2007Q2

REPORT INFORMATION
  Report Type: 
  Country: None (occurrence: None)
  Receive Date: 20070601
  Receipt Date: 20070521
  Transmission Date: 20071010
  Serious: Yes (Other)
  Sender: FDA-Public Use
  Company Number: 16621

PATIENT
  Age: 73 Year
  Sex: Male

DRUGS (4)
  1. LEUCOVORIN CALCIUM [Suspect]
     Indication: COLON CANCER STAGE III
     Dosage: 500 MG/M2 WEEKLY IV
     Route: 042
  2. FLUOROURACIL [Suspect]
     Indication: COLON CANCER STAGE III
     Dosage: 500 MG/M2 WEEKLY IV
     Route: 042
  3. FLUOROURACIL [Suspect]
     Indication: COLON CANCER STAGE III
  4. OXALIPLATIN [Suspect]
     Indication: COLON CANCER STAGE III
     Dosage: 85 MG/M2 OTH IV
     Route: 042

REACTIONS (2)
  - SMALL INTESTINAL ULCER HAEMORRHAGE [None]
  - VASCULITIS GASTROINTESTINAL [None]
